FAERS Safety Report 6956049-8 (Version None)
Quarter: 2010Q3

REPORT INFORMATION
  Report Type: 
  Country: None (occurrence: None)
  Receive Date: 20100830
  Receipt Date: 20100820
  Transmission Date: 20110219
  Serious: Yes (Hospitalization)
  Sender: FDA-Public Use
  Company Number: GXKR2010IL09380

PATIENT
  Age: 60 Year
  Sex: Female

DRUGS (5)
  1. FUROSEMIDE (NGX) [Suspect]
     Dosage: 40-60 MG DAILY
     Route: 065
  2. FUROSEMIDE (NGX) [Suspect]
     Dosage: UP TO 1000 MG, DAILY
     Route: 065
  3. ORLISTAT [Suspect]
     Dosage: 120-240 MG/DAY
     Route: 065
  4. ETORICOXIB [Suspect]
     Indication: ARTHRALGIA
     Dosage: 90 MG/DAY
     Route: 065
  5. NSAID'S [Concomitant]
     Indication: MONARTHRITIS
     Dosage: UNK

REACTIONS (2)
  - HAEMODIALYSIS [None]
  - RENAL FAILURE [None]
